FAERS Safety Report 22521491 (Version 1)
Quarter: 2023Q2

REPORT INFORMATION
  Report Type: Spontaneous
  Country: JP (occurrence: JP)
  Receive Date: 20230605
  Receipt Date: 20230605
  Transmission Date: 20230722
  Serious: No
  Sender: FDA-Public Use
  Company Number: JP-Covis Pharma GmbH-2023COV01248

PATIENT
  Age: 63 Year
  Sex: Male

DRUGS (8)
  1. CICLESONIDE [Suspect]
     Active Substance: CICLESONIDE
     Indication: COVID-19
  2. DEXAMETHASONE [Suspect]
     Active Substance: DEXAMETHASONE
     Indication: COVID-19
     Route: 048
  3. OXYGEN [Suspect]
     Active Substance: OXYGEN
     Indication: COVID-19
     Route: 048
  4. OXYGEN [Suspect]
     Active Substance: OXYGEN
  5. RABEPRAZOLE SODIUM [Suspect]
     Active Substance: RABEPRAZOLE SODIUM
     Indication: Product used for unknown indication
     Route: 048
  6. RABEPRAZOLE SODIUM [Suspect]
     Active Substance: RABEPRAZOLE SODIUM
  7. INSULIN NOS [Suspect]
     Active Substance: INSULIN NOS
     Indication: Product used for unknown indication
     Route: 058
  8. INSULIN NOS [Suspect]
     Active Substance: INSULIN NOS

REACTIONS (1)
  - Off label use [Unknown]
